FAERS Safety Report 6650364-3 (Version None)
Quarter: 2010Q1

REPORT INFORMATION
  Report Type: 
  Country: None (occurrence: None)
  Receive Date: 20100325
  Receipt Date: 20100316
  Transmission Date: 20100710
  Serious: Yes (Hospitalization)
  Sender: FDA-Public Use
  Company Number: US-ALEXION-A201000307

PATIENT
  Sex: Male

DRUGS (1)
  1. SOLIRIS [Suspect]
     Dosage: UNK

REACTIONS (3)
  - ABDOMINAL PAIN UPPER [None]
  - APPENDICECTOMY [None]
  - INTESTINAL FUNCTIONAL DISORDER [None]
